FAERS Safety Report 11056238 (Version 1)
Quarter: 2015Q2

REPORT INFORMATION
  Report Type: Report from Study
  Country: CO (occurrence: CO)
  Receive Date: 20150422
  Receipt Date: 20150422
  Transmission Date: 20150821
  Serious: Yes (Death, Hospitalization)
  Sender: FDA-Public Use
  Company Number: CO-INCYTE CORPORATION-2015IN001605

PATIENT
  Age: 69 Year
  Sex: Male
  Weight: 60 kg

DRUGS (1)
  1. JAKAFI [Suspect]
     Active Substance: RUXOLITINIB
     Indication: MYELOFIBROSIS
     Dosage: 2 DF, UNK
     Route: 065

REACTIONS (3)
  - Cardio-respiratory arrest [Fatal]
  - Myelofibrosis [Fatal]
  - Dyspnoea [Unknown]

NARRATIVE: CASE EVENT DATE: 20140813
